FAERS Safety Report 16188856 (Version 1)
Quarter: 2019Q2

REPORT INFORMATION
  Report Type: Spontaneous
  Country: US (occurrence: US)
  Receive Date: 20190412
  Receipt Date: 20190412
  Transmission Date: 20190711
  Serious: No
  Sender: FDA-Public Use
  Company Number: US-TEVA-2018-US-972692

PATIENT
  Age: 6 Decade
  Sex: Male

DRUGS (2)
  1. TOPIRAMATE. [Suspect]
     Active Substance: TOPIRAMATE
     Indication: VESTIBULAR MIGRAINE
     Dosage: 50 MG IN THE MORNING AND 75 MG IN THE EVENING (INITIAL DOSE)
     Route: 065
  2. TOPIRAMATE. [Suspect]
     Active Substance: TOPIRAMATE
     Dosage: HIGHER DOSE, AT WHICH THE INTOLERANCE OCCURRED
     Route: 065

REACTIONS (2)
  - Somnolence [Unknown]
  - Feeling abnormal [Unknown]
